FAERS Safety Report 22237956 (Version 3)
Quarter: 2023Q2

REPORT INFORMATION
  Report Type: Report from Study
  Country: US (occurrence: None)
  Receive Date: 20230421
  Receipt Date: 20230523
  Transmission Date: 20230721
  Serious: Yes (Other)
  Sender: FDA-Public Use
  Company Number: US-ROCHE-3115867

PATIENT
  Age: 79 Year
  Sex: Male

DRUGS (2)
  1. OBINUTUZUMAB [Suspect]
     Active Substance: OBINUTUZUMAB
     Indication: Chronic lymphocytic leukaemia
     Dosage: ON 09/MAY/2022, THE MOST RECENT DOSE OF OBINUTUZUMAB. ON 27/APR/2023, DATE OF LAST TREATMENT PRIOR T
     Route: 042
     Dates: start: 20220214
  2. ACALABRUTINIB [Suspect]
     Active Substance: ACALABRUTINIB
     Indication: Chronic lymphocytic leukaemia
     Dosage: ON 27/MAY/2022, DATE OF LAST TREATMENT PRIOR TO SAE
     Route: 065
     Dates: start: 20220118

REACTIONS (5)
  - COVID-19 [Recovered/Resolved]
  - Hyponatraemia [Recovered/Resolved]
  - Transient ischaemic attack [Recovered/Resolved]
  - Confusional state [Unknown]
  - Hyponatraemia [Unknown]

NARRATIVE: CASE EVENT DATE: 20220527
